FAERS Safety Report 5285726-2 (Version None)
Quarter: 2007Q1

REPORT INFORMATION
  Report Type: 
  Country: None (occurrence: None)
  Receive Date: 20070126
  Receipt Date: 20060929
  Transmission Date: 20070707
  Serious: No
  Sender: FDA-Public Use
  Company Number: 2006CT000761

PATIENT
  Age: 40 Year
  Sex: Female
  Weight: 68.0396 kg

DRUGS (17)
  1. VENTAVIS [Suspect]
     Indication: PULMONARY HYPERTENSION
     Dosage: SEE IMAGE
     Route: 055
     Dates: start: 20060908, end: 20060920
  2. VENTAVIS [Suspect]
     Indication: PULMONARY HYPERTENSION
     Dosage: SEE IMAGE
     Route: 055
     Dates: start: 20060920, end: 20061004
  3. DIPHENHYDRAMINE HCL [Concomitant]
  4. BUSPIRONE HCL [Concomitant]
  5. CYCLOBENZAPRINE HCL [Concomitant]
  6. DIGOXIN [Concomitant]
  7. GEMFIBROZIL [Concomitant]
  8. HYDROCHLOROTHIAZIDE [Concomitant]
  9. K-DUR 10 [Concomitant]
  10. LISINOPRIL [Concomitant]
  11. SYNTHROID [Concomitant]
  12. LORATADINE [Concomitant]
  13. VITAMIN CAP [Concomitant]
  14. PAXIL [Concomitant]
  15. CRESTOR [Concomitant]
  16. TEMAZEPAM [Concomitant]
  17. FUROSEMIDE [Concomitant]

REACTIONS (4)
  - CHEST PAIN [None]
  - HEADACHE [None]
  - NASAL CONGESTION [None]
  - PAIN IN JAW [None]
